FAERS Safety Report 20940411 (Version 3)
Quarter: 2022Q4

REPORT INFORMATION
  Report Type: Report from Study
  Country: US (occurrence: US)
  Receive Date: 20220609
  Receipt Date: 20221012
  Transmission Date: 20230113
  Serious: Yes (Hospitalization, Other)
  Sender: FDA-Public Use
  Company Number: US-NOVARTISPH-NVSC2022US127957

PATIENT
  Age: 59 Year
  Sex: Female

DRUGS (6)
  1. ENTRESTO [Suspect]
     Active Substance: SACUBITRIL\VALSARTAN
     Indication: Product used for unknown indication
     Dosage: 1 DOSAGE FORM (97/103 MG), BID
     Route: 048
     Dates: start: 20210114
  2. ROSUVASTATIN [Suspect]
     Active Substance: ROSUVASTATIN
     Indication: Blood cholesterol
     Dosage: 20 MG, QD
     Route: 065
  3. BUMETANIDE [Suspect]
     Active Substance: BUMETANIDE
     Indication: Product used for unknown indication
     Dosage: 0.5 DOSAGE FORM, QD (2 MG TABLET, CUTS TABLET HALF. PT TAKES 1 MG PER DAY)
     Route: 065
  4. METOPROLOL [Suspect]
     Active Substance: METOPROLOL
     Indication: Cardiac disorder
     Dosage: 25 MG, QD
     Route: 065
  5. ASPIRIN [Suspect]
     Active Substance: ASPIRIN
     Dosage: 1 DOSAGE FORM, QD (BABY ASPIRIN)
     Route: 065
  6. POTASSIUM GLUCONATE [Suspect]
     Active Substance: POTASSIUM GLUCONATE
     Indication: Product used for unknown indication
     Dosage: 90 MG, QD
     Route: 065

REACTIONS (13)
  - Immune thrombocytopenia [Recovering/Resolving]
  - Pulmonary oedema [Unknown]
  - Loss of consciousness [Unknown]
  - Thrombosis [Unknown]
  - Dyspnoea [Unknown]
  - Fatigue [Unknown]
  - Sinusitis [Unknown]
  - Limb discomfort [Unknown]
  - Platelet count decreased [Unknown]
  - Asthenia [Unknown]
  - Hypotension [Unknown]
  - Cough [Unknown]
  - Dizziness [Unknown]

NARRATIVE: CASE EVENT DATE: 20210101
